FAERS Safety Report 8022285-5 (Version None)
Quarter: 2012Q1

REPORT INFORMATION
  Report Type: 
  Country: None (occurrence: None)
  Receive Date: 20120104
  Receipt Date: 20111226
  Transmission Date: 20120608
  Serious: Yes (Hospitalization)
  Sender: FDA-Public Use
  Company Number: PHHY2011JP113020

PATIENT
  Age: 2 Year
  Sex: Female

DRUGS (3)
  1. CYCLOSPORINE [Suspect]
     Indication: KAWASAKI'S DISEASE
     Dosage: UNK
  2. ASPIRIN [Concomitant]
  3. FLURBIPROFEN [Concomitant]
     Route: 048

REACTIONS (1)
  - INFLAMMATION [None]
